FAERS Safety Report 14013233 (Version 1)
Quarter: 2017Q3

REPORT INFORMATION
  Report Type: Report from Study
  Country: CO (occurrence: CO)
  Receive Date: 20170926
  Receipt Date: 20170926
  Transmission Date: 20171128
  Serious: Yes (Hospitalization, Other)
  Sender: FDA-Public Use
  Company Number: CO-AMGEN-COLSL2017109367

PATIENT
  Age: 54 Year
  Sex: Male

DRUGS (1)
  1. VECTIBIX [Suspect]
     Active Substance: PANITUMUMAB
     Indication: COLORECTAL CANCER METASTATIC
     Dosage: 340 MG, Q2WK
     Route: 042
     Dates: start: 20170220, end: 20170627

REACTIONS (10)
  - Gastric disorder [Not Recovered/Not Resolved]
  - Weight decreased [Unknown]
  - General physical health deterioration [Not Recovered/Not Resolved]
  - Haemoglobin decreased [Not Recovered/Not Resolved]
  - Transfusion [Recovered/Resolved]
  - Dehydration [Recovered/Resolved]
  - Vomiting [Not Recovered/Not Resolved]
  - Asthenia [Unknown]
  - Gastrointestinal disorder [Not Recovered/Not Resolved]
  - Decreased appetite [Not Recovered/Not Resolved]

NARRATIVE: CASE EVENT DATE: 2017
